FAERS Safety Report 14519134 (Version 1)
Quarter: 2018Q1

REPORT INFORMATION
  Report Type: Spontaneous
  Country: IE (occurrence: IE)
  Receive Date: 20180212
  Receipt Date: 20180212
  Transmission Date: 20180509
  Serious: Yes (Disabling, Congenital Anomaly, Other)
  Sender: FDA-Public Use
  Company Number: IE-ABBVIE-18S-229-2252789-00

PATIENT

DRUGS (1)
  1. EPILIM [Suspect]
     Active Substance: VALPROATE SODIUM
     Indication: MATERNAL EXPOSURE TIMING UNSPECIFIED
     Route: 064

REACTIONS (14)
  - Seizure [Unknown]
  - Foetal anticonvulsant syndrome [Unknown]
  - Developmental delay [Unknown]
  - Congenital anomaly [Unknown]
  - Hypoglycaemia [Unknown]
  - Withdrawal syndrome [Unknown]
  - Cerebral palsy [Unknown]
  - Foetal malformation [Unknown]
  - Spina bifida [Unknown]
  - Foetal exposure during pregnancy [Unknown]
  - Premature baby [Unknown]
  - Disability [Unknown]
  - Autism spectrum disorder [Unknown]
  - Abnormal behaviour [Unknown]
